FAERS Safety Report 7306422-3 (Version None)
Quarter: 2011Q1

REPORT INFORMATION
  Report Type: 
  Country: None (occurrence: None)
  Receive Date: 20110119
  Receipt Date: 20100927
  Transmission Date: 20110831
  Serious: No
  Sender: FDA-Public Use
  Company Number: A-US2010-40182

PATIENT
  Age: 76 Year
  Sex: Female

DRUGS (10)
  1. TRACLEER [Suspect]
  2. TRACLEER [Suspect]
     Indication: PULMONARY ARTERIAL HYPERTENSION
     Dosage: ORAL, 62.5 MG, BID, ORAL
     Route: 048
     Dates: start: 20100914, end: 20101001
  3. TRACLEER [Suspect]
     Indication: PULMONARY ARTERIAL HYPERTENSION
     Dosage: ORAL, 62.5 MG, BID, ORAL
     Route: 048
     Dates: start: 20101001
  4. CALCIUM CHANNEL BLOCKERS [Concomitant]
  5. MAGNESIUM (MAGNESIUM OXIDE) [Concomitant]
  6. AMARYL [Concomitant]
  7. METFORMIN (METFORMIN) [Concomitant]
  8. ASPIRIN [Concomitant]
  9. NIFEDIPINE [Concomitant]
  10. LISINOPRIL (LISINOPRIL DIHYDRATE) [Concomitant]

REACTIONS (3)
  - WEIGHT INCREASED [None]
  - DYSPNOEA [None]
  - OEDEMA PERIPHERAL [None]
